FAERS Safety Report 9889158 (Version 1)
Quarter: 2014Q1

REPORT INFORMATION
  Report Type: Spontaneous
  Country: US (occurrence: US)
  Receive Date: 20140211
  Receipt Date: 20140211
  Transmission Date: 20141002
  Serious: Yes (Hospitalization, Other)
  Sender: FDA-Public Use
  Company Number: US-BAYER-2014-016706

PATIENT
  Age: 79 Year
  Sex: Female

DRUGS (4)
  1. CIPRO [Suspect]
     Indication: DIVERTICULITIS
     Dosage: UNK, HALF DOSE
     Dates: start: 201308, end: 201308
  2. CIPRO [Suspect]
     Indication: DIVERTICULITIS
     Dosage: UNK, 700MG
     Dates: start: 201308, end: 201308
  3. METRONIDAZOLE [Suspect]
     Dosage: HALF DOSE
  4. METRONIDAZOLE [Suspect]
     Dosage: 700MG

REACTIONS (13)
  - Bladder disorder [Unknown]
  - Chromaturia [Unknown]
  - Nausea [Unknown]
  - Abdominal discomfort [Unknown]
  - Loss of consciousness [Unknown]
  - Dysgeusia [Unknown]
  - Blood pressure decreased [Unknown]
  - Insomnia [Unknown]
  - Vomiting [Unknown]
  - Fall [Unknown]
  - Cardiac murmur [Unknown]
  - Tendonitis [Unknown]
  - Extra dose administered [Unknown]
